FAERS Safety Report 24153967 (Version 1)
Quarter: 2024Q3

REPORT INFORMATION
  Report Type: Spontaneous
  Country: US (occurrence: US)
  Receive Date: 20240730
  Receipt Date: 20240730
  Transmission Date: 20241017
  Serious: No
  Sender: MYLAN
  Company Number: US-MYLANLABS-2024M1068669

PATIENT
  Age: 79 Year
  Sex: Male
  Weight: 58.97 kg

DRUGS (4)
  1. LATANOPROST [Suspect]
     Active Substance: LATANOPROST
     Indication: Intraocular pressure increased
     Dosage: 2 GTT DROPS, QD (ONE DROP IN BOTH EYES ONCE DAILY IN THE EVENING)
     Route: 047
     Dates: start: 20240718
  2. TAMSULOSIN [Concomitant]
     Active Substance: TAMSULOSIN
     Indication: Blood pressure abnormal
     Dosage: UNK
     Route: 065
  3. FINASTERIDE [Concomitant]
     Active Substance: FINASTERIDE
     Dosage: UNK
     Route: 065
  4. FEBUXOSTAT [Concomitant]
     Active Substance: FEBUXOSTAT
     Dosage: UNK
     Route: 065

REACTIONS (1)
  - Vision blurred [Not Recovered/Not Resolved]

NARRATIVE: CASE EVENT DATE: 20240721
